FAERS Safety Report 4351537-5 (Version None)
Quarter: 2004Q2

REPORT INFORMATION
  Report Type: 
  Country: None (occurrence: None)
  Receive Date: 20040428
  Receipt Date: 20040414
  Transmission Date: 20050107
  Serious: Yes (Other)
  Sender: FDA-Public Use
  Company Number: 2004-BP-02779BP

PATIENT
  Sex: Female

DRUGS (1)
  1. MOBIC [Suspect]
     Indication: ACCIDENTAL EXPOSURE
     Dosage: SEE TEXT, STRENGTH: 5 MG/ML)
     Dates: start: 20040329, end: 20040329

REACTIONS (3)
  - ACCIDENTAL EXPOSURE [None]
  - EYE IRRITATION [None]
  - EYE PAIN [None]
